FAERS Safety Report 26105502 (Version 2)
Quarter: 2025Q4

REPORT INFORMATION
  Report Type: Report from Study
  Country: GB (occurrence: None)
  Receive Date: 20251201
  Receipt Date: 20251208
  Transmission Date: 20260118
  Serious: Yes (Hospitalization)
  Sender: Alvotech
  Company Number: GB-ALVOTECHPMS-2025-ALVOTECHPMS-005908

PATIENT
  Age: 59 Year
  Sex: Male

DRUGS (1)
  1. USTEKINUMAB [Suspect]
     Active Substance: USTEKINUMAB
     Indication: Crohn^s disease
     Dosage: SOLUTION FOR INJECTION PRE-FILLED?SYRINGES
     Route: 058
     Dates: start: 202506

REACTIONS (1)
  - Atrial fibrillation [Unknown]
